FAERS Safety Report 13648401 (Version 1)
Quarter: 2017Q2

REPORT INFORMATION
  Report Type: Spontaneous
  Country: FR (occurrence: FR)
  Receive Date: 20170613
  Receipt Date: 20170613
  Transmission Date: 20170830
  Serious: Yes (Hospitalization)
  Sender: FDA-Public Use
  Company Number: FR-BAYER-2017-110223

PATIENT
  Age: 26 Year
  Sex: Female

DRUGS (2)
  1. MIRENA [Suspect]
     Active Substance: LEVONORGESTREL
     Indication: CONTRACEPTION
     Dosage: 20 MCG/24HR, CONT
     Dates: start: 2014, end: 20170524
  2. MIRENA [Suspect]
     Active Substance: LEVONORGESTREL
     Indication: CONTRACEPTION
     Dosage: 20 MCG/24HR, CONT
     Route: 015
     Dates: start: 2009, end: 2014

REACTIONS (10)
  - Fibroadenoma of breast [Unknown]
  - Asthenia [Unknown]
  - Tachycardia [Unknown]
  - Weight increased [Unknown]
  - Fungal infection [Unknown]
  - Back pain [Unknown]
  - Ovarian cyst ruptured [Recovered/Resolved]
  - Migraine with aura [Unknown]
  - Irritability [Unknown]
  - Loss of libido [Unknown]

NARRATIVE: CASE EVENT DATE: 2013
